FAERS Safety Report 18279004 (Version 2)
Quarter: 2022Q1

REPORT INFORMATION
  Report Type: Report from Study
  Country: US (occurrence: US)
  Receive Date: 20200917
  Receipt Date: 20220204
  Transmission Date: 20220424
  Serious: Yes (Hospitalization, Other)
  Sender: FDA-Public Use
  Company Number: US-AMGEN-USASL2020067062

PATIENT
  Age: 58 Year
  Sex: Female

DRUGS (3)
  1. ENBREL [Suspect]
     Active Substance: ETANERCEPT
     Indication: Rheumatoid arthritis
     Dosage: 50 MILLIGRAM, QWK
     Route: 065
     Dates: start: 1998
  2. FOSAMAX [Concomitant]
     Active Substance: ALENDRONATE SODIUM
     Indication: Osteogenesis imperfecta
     Dosage: UNK, QWK
     Dates: start: 2001
  3. MEDROL [Concomitant]
     Active Substance: METHYLPREDNISOLONE
     Indication: Pain
     Dosage: UNK UNK, QWK

REACTIONS (5)
  - Foot fracture [Unknown]
  - Fall [Unknown]
  - Uterine leiomyoma [Recovered/Resolved]
  - Hot flush [Recovered/Resolved]
  - Bone contusion [Unknown]

NARRATIVE: CASE EVENT DATE: 20050101
